FAERS Safety Report 5348092-X (Version None)
Quarter: 2007Q2

REPORT INFORMATION
  Report Type: 
  Country: None (occurrence: None)
  Receive Date: 20070606
  Receipt Date: 20070525
  Transmission Date: 20071010
  Serious: Yes (Hospitalization)
  Sender: FDA-Public Use
  Company Number: MX-SANOFI-SYNTHELABO-A01200705668

PATIENT
  Age: 49 Year
  Sex: Female
  Weight: 85 kg

DRUGS (2)
  1. NALIDIXIC ACID/PHENAZOPYRIDINE [Suspect]
     Indication: PROPHYLAXIS URINARY TRACT INFECTION
     Dosage: 500 MG NALIDIXIC ACID +50 MG PHENAZOPYRIDINE 2 TABS/DAY (UNIQUE DOSE)
     Route: 048
     Dates: start: 20070512, end: 20070512
  2. KETOROLAC TROMETHAMINE [Concomitant]
     Indication: PAIN
     Route: 060
     Dates: start: 20070512, end: 20070512

REACTIONS (9)
  - CHEST PAIN [None]
  - DYSPNOEA [None]
  - HYPERHIDROSIS [None]
  - HYPOTENSION [None]
  - NAUSEA [None]
  - PALLOR [None]
  - SYNCOPE [None]
  - SYNCOPE VASOVAGAL [None]
  - VOMITING [None]
